FAERS Safety Report 21982960 (Version 6)
Quarter: 2023Q2

REPORT INFORMATION
  Report Type: Report from Study
  Country: DE (occurrence: DE)
  Receive Date: 20230213
  Receipt Date: 20230511
  Transmission Date: 20230722
  Serious: Yes (Disabling, Other)
  Sender: FDA-Public Use
  Company Number: DE-002147023-NVSC2023DE030251

PATIENT
  Sex: Female
  Weight: 66 kg

DRUGS (4)
  1. TYKERB [Suspect]
     Active Substance: LAPATINIB DITOSYLATE
     Indication: Breast cancer
     Dosage: 1500 MG
     Route: 048
     Dates: start: 20090113, end: 20090325
  2. TYKERB [Suspect]
     Active Substance: LAPATINIB DITOSYLATE
     Dosage: 1500 MG
     Route: 048
     Dates: start: 20090409, end: 20100112
  3. CHOLECALCIFEROL [Concomitant]
     Active Substance: CHOLECALCIFEROL
     Indication: Product used for unknown indication
     Dosage: 20000 I.U, TWICE PER WEEK
     Route: 065
  4. CALCIUM [Concomitant]
     Active Substance: CALCIUM
     Indication: Osteoporosis prophylaxis
     Dosage: UNK
     Route: 065

REACTIONS (5)
  - Lymphoedema [Recovering/Resolving]
  - Polyneuropathy [Not Recovered/Not Resolved]
  - General physical health deterioration [Not Recovered/Not Resolved]
  - Hepatic steatosis [Unknown]
  - Paronychia [Recovering/Resolving]

NARRATIVE: CASE EVENT DATE: 20090101
